FAERS Safety Report 15680235 (Version 2)
Quarter: 2019Q1

REPORT INFORMATION
  Report Type: Spontaneous
  Country: FR (occurrence: FR)
  Receive Date: 20181203
  Receipt Date: 20190201
  Transmission Date: 20190417
  Serious: Yes (Other)
  Sender: FDA-Public Use
  Company Number: FR-009507513-1811FRA009534

PATIENT
  Age: 44 Year
  Sex: Male
  Weight: 84 kg

DRUGS (4)
  1. LIPTRUZET [Suspect]
     Active Substance: ATORVASTATIN CALCIUM\EZETIMIBE
     Dosage: STRENGTH: 10/10 (UNITS UNSPECIFIED), 1 DOSAGE FORM, QD
     Route: 048
     Dates: start: 2017, end: 201807
  2. ASPIRIN. [Concomitant]
     Active Substance: ASPIRIN
     Dosage: 1 TABLET, DAILY (QD)
  3. ENALAPRIL [Concomitant]
     Active Substance: ENALAPRIL
     Dosage: 1/2 TABLET, DAILY (QD) PER OS
  4. LIPTRUZET [Suspect]
     Active Substance: ATORVASTATIN CALCIUM\EZETIMIBE
     Dosage: 3 TABLETS, WEEKLY (QW)
     Route: 048
     Dates: start: 201807, end: 201810

REACTIONS (3)
  - Aortic valve calcification [Unknown]
  - Off label use [Unknown]
  - Myalgia [Recovered/Resolved]

NARRATIVE: CASE EVENT DATE: 201706
